FAERS Safety Report 4983643-6 (Version None)
Quarter: 2006Q2

REPORT INFORMATION
  Report Type: 
  Country: None (occurrence: None)
  Receive Date: 20060425
  Receipt Date: 20060425
  Transmission Date: 20061013
  Serious: Yes (Hospitalization)
  Sender: FDA-Public Use
  Company Number: None

PATIENT
  Age: 79 Year
  Sex: Male
  Weight: 57.6068 kg

DRUGS (9)
  1. OXANDROLONE [Suspect]
     Indication: LUNG NEOPLASM MALIGNANT
     Dosage: 10MG/BID
  2. OXANDROLONE [Suspect]
     Indication: WEIGHT DECREASED
     Dosage: 10MG/BID
  3. DOCETAXOL [Concomitant]
  4. BORTEZOMIB [Concomitant]
  5. ACTOS [Concomitant]
  6. NORVASC [Concomitant]
  7. DETROL [Concomitant]
  8. XANAX [Concomitant]
  9. PROTONIX [Concomitant]

REACTIONS (7)
  - BLOOD GLUCOSE INCREASED [None]
  - CONFUSIONAL STATE [None]
  - HAEMATOCRIT DECREASED [None]
  - HAEMOGLOBIN DECREASED [None]
  - MALIGNANT NEOPLASM PROGRESSION [None]
  - PLATELET COUNT INCREASED [None]
  - RESPIRATORY RATE INCREASED [None]
